FAERS Safety Report 25404514 (Version 1)
Quarter: 2025Q2

REPORT INFORMATION
  Report Type: Spontaneous
  Country: IT (occurrence: IT)
  Receive Date: 20250606
  Receipt Date: 20250606
  Transmission Date: 20250717
  Serious: Yes (Hospitalization)
  Sender: ACCORD
  Company Number: None

PATIENT
  Age: 1 Month
  Sex: Female
  Weight: 3 kg

DRUGS (2)
  1. CARBOPLATIN [Suspect]
     Active Substance: CARBOPLATIN
     Indication: Neonatal neuroblastoma
     Dates: start: 20250412, end: 20250505
  2. ETOPOSIDE [Suspect]
     Active Substance: ETOPOSIDE
     Indication: Neonatal neuroblastoma
     Dates: start: 20250412, end: 20250505

REACTIONS (1)
  - Pancytopenia [Recovering/Resolving]

NARRATIVE: CASE EVENT DATE: 20250512
